FAERS Safety Report 5163531-5 (Version None)
Quarter: 2006Q4

REPORT INFORMATION
  Report Type: 
  Country: None (occurrence: None)
  Receive Date: 20061204
  Receipt Date: 20060217
  Transmission Date: 20070319
  Serious: Yes (Hospitalization, Disabling)
  Sender: FDA-Public Use
  Company Number: GB-BRISTOL-MYERS SQUIBB COMPANY-13289723

PATIENT
  Age: 55 Year
  Sex: Male
  Weight: 85 kg

DRUGS (2)
  1. KENALOG-40 [Suspect]
     Route: 030
     Dates: start: 20060217, end: 20060217
  2. MARCAINE [Suspect]
     Dates: start: 20060217, end: 20060217

REACTIONS (2)
  - EXTRAVASATION [None]
  - MONOPLEGIA [None]
